FAERS Safety Report 16181308 (Version 2)
Quarter: 2020Q3

REPORT INFORMATION
  Report Type: Spontaneous
  Country: US (occurrence: US)
  Receive Date: 20190410
  Receipt Date: 20200909
  Transmission Date: 20201102
  Serious: Yes (Other)
  Sender: FDA-Public Use
  Company Number: US-LEXICON PHARMACEUTICALS, INC-19-1606-00400

PATIENT
  Age: 67 Year
  Sex: Male

DRUGS (2)
  1. TELOTRISTAT ETHYL [Suspect]
     Active Substance: TELOTRISTAT ETHYL
     Indication: CARCINOID TUMOUR OF THE SMALL BOWEL
     Route: 048
     Dates: start: 20170503
  2. AFINITOR [Concomitant]
     Active Substance: EVEROLIMUS
     Indication: CARCINOID TUMOUR
     Route: 048

REACTIONS (4)
  - Peripheral swelling [Unknown]
  - Disease progression [Unknown]
  - Mouth ulceration [Unknown]
  - Dyspnoea [Unknown]

NARRATIVE: CASE EVENT DATE: 20190403
